FAERS Safety Report 19007973 (Version 3)
Quarter: 2021Q2

REPORT INFORMATION
  Report Type: Spontaneous
  Country: US (occurrence: US)
  Receive Date: 20210315
  Receipt Date: 20210501
  Transmission Date: 20210717
  Serious: No
  Sender: FDA-Public Use
  Company Number: US-ASTRAZENECA-2021A084591

PATIENT
  Sex: Male
  Weight: 93 kg

DRUGS (2)
  1. BREZTRI AEROSPHERE [Suspect]
     Active Substance: BUDESONIDE\FORMOTEROL\GLYCOPYRRONIUM
     Indication: DYSPNOEA
     Dosage: 160MCG/7.2MCG/4.8MCG,, 2 PUFFS TWICE DAILY
     Route: 055
     Dates: start: 202012
  2. BREZTRI AEROSPHERE [Suspect]
     Active Substance: BUDESONIDE\FORMOTEROL\GLYCOPYRRONIUM
     Indication: CHRONIC OBSTRUCTIVE PULMONARY DISEASE
     Dosage: 160MCG/7.2MCG/4.8MCG,, 2 PUFFS TWICE DAILY
     Route: 055
     Dates: start: 202012

REACTIONS (8)
  - Product cleaning inadequate [Unknown]
  - Device mechanical issue [Unknown]
  - Intentional device misuse [Unknown]
  - Wrong technique in device usage process [Unknown]
  - Incorrect dose administered by device [Unknown]
  - Device malfunction [Unknown]
  - Dyspnoea [Unknown]
  - Product packaging quantity issue [Unknown]
